FAERS Safety Report 11558635 (Version 1)
Quarter: 2015Q3

REPORT INFORMATION
  Report Type: Spontaneous
  Country: US (occurrence: US)
  Receive Date: 20150928
  Receipt Date: 20150928
  Transmission Date: 20151125
  Serious: No
  Sender: FDA-Public Use
  Company Number: US-SUN PHARMACEUTICAL INDUSTRIES LTD-2015US-96939

PATIENT
  Sex: Male

DRUGS (1)
  1. LORATADINE. [Suspect]
     Active Substance: LORATADINE
     Indication: RHINORRHOEA
     Dosage: 1 DF, SINGLE
     Route: 065
     Dates: start: 20150414

REACTIONS (3)
  - Nasal congestion [Unknown]
  - Drug ineffective [Unknown]
  - Sinus disorder [Unknown]

NARRATIVE: CASE EVENT DATE: 201504
